FAERS Safety Report 7469959-2 (Version None)
Quarter: 2011Q2

REPORT INFORMATION
  Report Type: 
  Country: None (occurrence: None)
  Receive Date: 20110510
  Receipt Date: 20110429
  Transmission Date: 20111010
  Serious: Yes (Hospitalization)
  Sender: FDA-Public Use
  Company Number: FR-GENENTECH-317997

PATIENT
  Sex: Female

DRUGS (6)
  1. CYCLOPHOSPHAMIDE [Suspect]
     Indication: CHRONIC LYMPHOCYTIC LEUKAEMIA
     Dosage: UNK
     Route: 002
     Dates: start: 20101108
  2. FLUDARABINE PHOSPHATE [Suspect]
     Indication: CHRONIC LYMPHOCYTIC LEUKAEMIA
     Dosage: UNK
     Route: 002
     Dates: start: 20101108
  3. FLUDARABINE PHOSPHATE [Suspect]
     Dosage: 60 MG, QAM
     Route: 002
     Dates: start: 20110201, end: 20110203
  4. CYCLOPHOSPHAMIDE [Suspect]
     Dosage: 400 MG, UNK
     Route: 002
     Dates: start: 20110201, end: 20110203
  5. RITUXAN [Suspect]
     Dosage: 580 MG, QAM
     Route: 041
     Dates: start: 20110131, end: 20110131
  6. RITUXAN [Suspect]
     Indication: CHRONIC LYMPHOCYTIC LEUKAEMIA
     Dosage: UNK
     Route: 041
     Dates: start: 20101108

REACTIONS (1)
  - PULMONARY EMBOLISM [None]
